FAERS Safety Report 21227681 (Version 1)
Quarter: 2022Q3

REPORT INFORMATION
  Report Type: Report from Study
  Country: CA (occurrence: CA)
  Receive Date: 20220818
  Receipt Date: 20220818
  Transmission Date: 20221026
  Serious: Yes (Other)
  Sender: FDA-Public Use
  Company Number: CA-BRISTOL-MYERS SQUIBB COMPANY-2022-088869

PATIENT
  Age: 77 Year
  Sex: Female
  Weight: 81.00 kg

DRUGS (8)
  1. ORENCIA [Suspect]
     Active Substance: ABATACEPT
     Indication: Rheumatoid arthritis
     Dosage: WEEKLY
     Route: 058
     Dates: start: 20220503
  2. METHOTREXATE [Concomitant]
     Active Substance: METHOTREXATE
     Indication: Product used for unknown indication
     Dosage: WEEKLY
     Route: 058
  3. SYNTHROID [Concomitant]
     Active Substance: LEVOTHYROXINE SODIUM
     Indication: Product used for unknown indication
     Route: 065
  4. TARO ANASTROZOLE [Concomitant]
     Indication: Product used for unknown indication
     Route: 065
  5. MCAL [Concomitant]
     Indication: Product used for unknown indication
     Dosage: 500  2 PER DAY AT DINNER
     Route: 065
  6. MINT HYDROXYCHLOROQUINE [Concomitant]
     Indication: Product used for unknown indication
     Dosage: 1 TABLET TWICE A DAY, MORNING AND EVENING
     Route: 065
  7. FOLIC ACID [Concomitant]
     Active Substance: FOLIC ACID
     Indication: Product used for unknown indication
     Dosage: ONCE DAILY, 6 DAYS, EXCEPT ON METHOTREXATE DAY
     Route: 065
  8. PREDNISONE [Concomitant]
     Active Substance: PREDNISONE
     Indication: Product used for unknown indication
     Route: 065

REACTIONS (2)
  - Pain [Unknown]
  - Cutaneous lymphoma [Unknown]

NARRATIVE: CASE EVENT DATE: 20220101
